FAERS Safety Report 5799064-2 (Version None)
Quarter: 2008Q3

REPORT INFORMATION
  Report Type: 
  Country: None (occurrence: None)
  Receive Date: 20080702
  Receipt Date: 20080616
  Transmission Date: 20090109
  Serious: No
  Sender: FDA-Public Use
  Company Number: US-BOEHRINGER INGELHEIM GMBH, GERMANY-2008-BP-09336BP

PATIENT
  Age: 64 Year
  Sex: Male

DRUGS (5)
  1. FLOMAX [Suspect]
     Indication: PROSTATE CANCER
     Route: 048
     Dates: start: 20080401
  2. CASODEX [Suspect]
     Indication: PROSTATE CANCER
     Dates: start: 20070901
  3. ZOLADEX [Suspect]
     Indication: PROSTATE CANCER
     Dates: start: 20070901
  4. HIV POSITIVE MEDS [Concomitant]
     Indication: HIV TEST POSITIVE
  5. PROSCAR [Concomitant]

REACTIONS (4)
  - DRUG INEFFECTIVE [None]
  - INSOMNIA [None]
  - NOCTURNAL DYSPNOEA [None]
  - SINUS DISORDER [None]
